FAERS Safety Report 6899129-8 (Version None)
Quarter: 2010Q3

REPORT INFORMATION
  Report Type: 
  Country: None (occurrence: None)
  Receive Date: 20100802
  Receipt Date: 20080115
  Transmission Date: 20110219
  Serious: No
  Sender: FDA-Public Use
  Company Number: US-PFIZER INC-2007093722

PATIENT
  Sex: Female
  Weight: 61.2 kg

DRUGS (2)
  1. LYRICA [Suspect]
     Indication: BACK PAIN
  2. LYRICA [Suspect]
     Indication: INTERVERTEBRAL DISC PROTRUSION

REACTIONS (2)
  - BACK PAIN [None]
  - MUSCULOSKELETAL PAIN [None]
